FAERS Safety Report 6714909-7 (Version None)
Quarter: 2010Q2

REPORT INFORMATION
  Report Type: 
  Country: None (occurrence: None)
  Receive Date: 20100507
  Receipt Date: 20100427
  Transmission Date: 20101027
  Serious: Yes (Hospitalization)
  Sender: FDA-Public Use
  Company Number: JP-ASTRAZENECA-2010SE20555

PATIENT
  Age: 16683 Day
  Sex: Male

DRUGS (3)
  1. MEROPEN [Suspect]
     Route: 042
  2. PAZUCROSS [Suspect]
  3. RIFADIN [Suspect]
     Route: 048

REACTIONS (1)
  - ACUTE GENERALISED EXANTHEMATOUS PUSTULOSIS [None]
